FAERS Safety Report 12579829 (Version 1)
Quarter: 2016Q3

REPORT INFORMATION
  Report Type: Spontaneous
  Country: US (occurrence: US)
  Receive Date: 20160721
  Receipt Date: 20160721
  Transmission Date: 20161109
  Serious: Yes (Other)
  Sender: FDA-Public Use
  Company Number: US-PFIZER INC-2016340539

PATIENT
  Age: 54 Year
  Sex: Female

DRUGS (2)
  1. THIOTHIXENE HCL [Suspect]
     Active Substance: THIOTHIXENE HYDROCHLORIDE
     Dosage: UNK
  2. NAVANE [Suspect]
     Active Substance: THIOTHIXENE
     Dosage: UNK

REACTIONS (3)
  - Paralysis [Not Recovered/Not Resolved]
  - Dyskinesia [Not Recovered/Not Resolved]
  - Nervous system disorder [Not Recovered/Not Resolved]
